FAERS Safety Report 6145530-X (Version None)
Quarter: 2009Q2

REPORT INFORMATION
  Report Type: 
  Country: None (occurrence: None)
  Receive Date: 20090402
  Receipt Date: 20090324
  Transmission Date: 20091009
  Serious: Yes (Other)
  Sender: FDA-Public Use
  Company Number: GXKR2009JP03840

PATIENT
  Age: 60 Year
  Sex: Male

DRUGS (7)
  1. PREDNISOLONE [Suspect]
     Indication: MULTIPLE MYELOMA
     Dosage: 0.5 MG/KG; 25 MG
  2. DEXAMETHASONE [Suspect]
     Indication: MULTIPLE MYELOMA
     Dosage: 20 MG (8 DAYS OUT OF TWO WEEKS) IN 1 CYCLE
  3. ACYCLOVIR [Suspect]
     Indication: HERPES ZOSTER
     Dosage: ORAL
     Route: 048
  4. MELPHALAN (MELPHALAN) [Suspect]
     Indication: MULTIPLE MYELOMA
  5. THALIDOMIDE [Suspect]
     Indication: MULTIPLE MYELOMA
     Dosage: MG/M2
  6. BORTEZOMIB (BORTEZOMIB) [Suspect]
     Indication: MULTIPLE MYELOMA
     Dosage: 1.3 MG/M2, (ON DAYS 1,4 ,8 AND 11)
  7. CYCLOSPORINE [Concomitant]

REACTIONS (6)
  - ALANINE AMINOTRANSFERASE INCREASED [None]
  - DIARRHOEA [None]
  - DRUG RASH WITH EOSINOPHILIA AND SYSTEMIC SYMPTOMS [None]
  - HERPES ZOSTER [None]
  - HYPOGAMMAGLOBULINAEMIA [None]
  - PANCYTOPENIA [None]
